FAERS Safety Report 26066747 (Version 2)
Quarter: 2025Q4

REPORT INFORMATION
  Report Type: Spontaneous
  Country: EU (occurrence: EU)
  Receive Date: 20251119
  Receipt Date: 20251218
  Transmission Date: 20260117
  Serious: Yes (Hospitalization, Other)
  Sender: ELI LILLY AND COMPANY
  Company Number: EU-ELI_LILLY_AND_COMPANY-FR202511016273

PATIENT
  Age: 72 Year
  Sex: Male
  Weight: 65 kg

DRUGS (11)
  1. GEMZAR [Suspect]
     Active Substance: GEMCITABINE HYDROCHLORIDE
     Indication: Ductal adenocarcinoma of pancreas
     Dosage: 1760 MG, CYCLICAL (C1J1)
     Route: 042
     Dates: start: 20250804, end: 20250804
  2. GEMZAR [Suspect]
     Active Substance: GEMCITABINE HYDROCHLORIDE
     Dosage: UNK UNK, CYCLICAL
     Route: 042
     Dates: start: 202401, end: 20250320
  3. GEMZAR [Suspect]
     Active Substance: GEMCITABINE HYDROCHLORIDE
     Dosage: 1760 MG, CYCLICAL (C2J1)
     Route: 042
     Dates: start: 20250904, end: 20250904
  4. GEMZAR [Suspect]
     Active Substance: GEMCITABINE HYDROCHLORIDE
     Dosage: UNK, CYCLICAL
     Route: 042
     Dates: start: 20240710, end: 20250120
  5. PACLITAXEL [Suspect]
     Active Substance: PACLITAXEL
     Indication: Ductal adenocarcinoma of pancreas
     Dosage: 220 MG, CYCLICAL (C1J1)
     Route: 042
     Dates: start: 20250804, end: 20250804
  6. PACLITAXEL [Suspect]
     Active Substance: PACLITAXEL
     Dosage: 220 MG, CYCLICAL (C2J1)
     Route: 042
     Dates: start: 20250904, end: 20250904
  7. PACLITAXEL [Suspect]
     Active Substance: PACLITAXEL
     Dosage: UNK UNK, CYCLICAL
     Route: 042
     Dates: start: 202401, end: 20250320
  8. PACLITAXEL [Suspect]
     Active Substance: PACLITAXEL
     Dosage: UNK, CYCLICAL
     Route: 042
     Dates: start: 20240710, end: 20250120
  9. PACLITAXEL [Suspect]
     Active Substance: PACLITAXEL
     Dosage: UNK, CYCLICAL
     Route: 065
     Dates: start: 20251021
  10. PACLITAXEL [Suspect]
     Active Substance: PACLITAXEL
     Dosage: UNK, CYCLICAL
     Route: 065
     Dates: start: 20251027
  11. PACLITAXEL [Suspect]
     Active Substance: PACLITAXEL
     Dosage: UNK
     Route: 065
     Dates: start: 20251112

REACTIONS (4)
  - Hepatic cytolysis [Not Recovered/Not Resolved]
  - Liver injury [Recovering/Resolving]
  - Venoocclusive liver disease [Not Recovered/Not Resolved]
  - Cholestasis [Not Recovered/Not Resolved]

NARRATIVE: CASE EVENT DATE: 20250806
